FAERS Safety Report 5453139-6 (Version None)
Quarter: 2007Q3

REPORT INFORMATION
  Report Type: 
  Country: None (occurrence: None)
  Receive Date: 20070914
  Receipt Date: 20070904
  Transmission Date: 20080115
  Serious: Yes (Other)
  Sender: FDA-Public Use
  Company Number: GB-PFIZER INC-2007074462

PATIENT
  Age: 53 Year
  Sex: Female
  Weight: 80 kg

DRUGS (3)
  1. VARENICLINE TABLETS [Suspect]
     Indication: EX-SMOKER
     Route: 048
     Dates: start: 20070423, end: 20070515
  2. FLUTICASONE PROPIONATE [Concomitant]
     Route: 055
  3. SALBUTAMOL [Concomitant]
     Route: 055

REACTIONS (2)
  - AMNESIA [None]
  - NAUSEA [None]
